FAERS Safety Report 4473281-6 (Version None)
Quarter: 2004Q4

REPORT INFORMATION
  Report Type: 
  Country: None (occurrence: None)
  Receive Date: 20041013
  Receipt Date: 20040820
  Transmission Date: 20050328
  Serious: Yes (Hospitalization)
  Sender: FDA-Public Use
  Company Number: PHBS2004JP11060

PATIENT
  Age: 65 Year
  Sex: Male
  Weight: 67 kg

DRUGS (7)
  1. DIOVAN [Suspect]
     Dosage: 160 MG/DAY
     Route: 048
     Dates: start: 20000101
  2. LOXOPROFEN SODIUM [Suspect]
     Route: 048
     Dates: start: 19990101, end: 20040805
  3. ALMARL [Concomitant]
     Indication: HYPERTENSION
     Dosage: 20 MG, UNK
     Route: 048
     Dates: start: 19990101
  4. AMLODIN [Concomitant]
     Indication: HYPERTENSION
     Dosage: 10 MG, UNK
     Route: 048
     Dates: start: 19990101
  5. BEZATOL - SLOW RELEASE [Concomitant]
     Indication: HYPERLIPIDAEMIA
     Route: 048
     Dates: start: 19990101, end: 20040801
  6. BENECID [Concomitant]
     Indication: HYPERURICAEMIA
     Route: 048
     Dates: start: 19990101, end: 20040801
  7. TOFISOPAM [Concomitant]
     Indication: ESSENTIAL TREMOR
     Dosage: UNK, UNK
     Route: 048
     Dates: start: 19990101, end: 20040801

REACTIONS (2)
  - DYSPNOEA [None]
  - INTERSTITIAL LUNG DISEASE [None]
